FAERS Safety Report 19921193 (Version 2)
Quarter: 2021Q4

REPORT INFORMATION
  Report Type: Spontaneous
  Country: JP (occurrence: JP)
  Receive Date: 20211006
  Receipt Date: 20211115
  Transmission Date: 20220303
  Serious: Yes (Hospitalization)
  Sender: FDA-Public Use
  Company Number: JP-TAKEDA-2021TJP096009

PATIENT
  Age: 78 Year
  Sex: Male
  Weight: 44.4 kg

DRUGS (5)
  1. ALUNBRIG [Suspect]
     Active Substance: BRIGATINIB
     Indication: Lung adenocarcinoma stage II
     Dosage: 60 MILLIGRAM, QD
     Route: 048
     Dates: start: 20210804, end: 20210808
  2. CAMOSTAT MESYLATE [Concomitant]
     Active Substance: CAMOSTAT MESYLATE
     Dosage: UNK
     Route: 048
  3. RABEPRAZOLE SODIUM [Concomitant]
     Active Substance: RABEPRAZOLE SODIUM
     Dosage: UNK
     Route: 048
  4. AMLODIPINE [Concomitant]
     Active Substance: AMLODIPINE BESYLATE
     Dosage: UNK
     Route: 048
  5. REBAMIPIDE [Concomitant]
     Active Substance: REBAMIPIDE
     Dosage: UNK
     Route: 048

REACTIONS (2)
  - Dyspnoea exertional [Recovering/Resolving]
  - Pulmonary toxicity [Recovering/Resolving]

NARRATIVE: CASE EVENT DATE: 20210808
